FAERS Safety Report 9301923 (Version 5)
Quarter: 2018Q2

REPORT INFORMATION
  Report Type: Spontaneous
  Country: FR (occurrence: FR)
  Receive Date: 20130521
  Receipt Date: 20180604
  Transmission Date: 20180711
  Serious: Yes (Other)
  Sender: FDA-Public Use
  Company Number: FR-PFIZER INC-2012193155

PATIENT
  Age: 29 Year
  Sex: Male

DRUGS (12)
  1. DOSTINEX [Suspect]
     Active Substance: CABERGOLINE
     Dosage: 3 MG (6 TABLETS), WEEKLY
     Dates: end: 20070204
  2. DOSTINEX [Suspect]
     Active Substance: CABERGOLINE
     Dosage: 3.5 MG TO BE TAKEN IN THE EVENING ONCE DAILY (49 DF, WEEKLY)
     Dates: start: 20071211
  3. DOSTINEX [Suspect]
     Active Substance: CABERGOLINE
     Dosage: 3 DF, WEEKLY
     Dates: start: 20120804
  4. DOSTINEX [Suspect]
     Active Substance: CABERGOLINE
     Dosage: 2.5 MG DAILY(35 DF, WEEKLY)
     Dates: start: 20070822, end: 20071210
  5. DOSTINEX [Suspect]
     Active Substance: CABERGOLINE
     Dosage: 0.5 MG, 1X/DAY
     Dates: start: 20080215
  6. DOSTINEX [Suspect]
     Active Substance: CABERGOLINE
     Indication: PITUITARY TUMOUR BENIGN
     Dosage: 0.5 MG, 2X/WEEK
     Dates: start: 20061207, end: 200612
  7. DOSTINEX [Suspect]
     Active Substance: CABERGOLINE
     Dosage: 1 MG, 2X/WEEK FOR ONE WEEK
     Dates: start: 200612, end: 200612
  8. DOSTINEX [Suspect]
     Active Substance: CABERGOLINE
     Dosage: 7 DF, WEEKLY
     Dates: start: 20080109
  9. DOSTINEX [Suspect]
     Active Substance: CABERGOLINE
     Dosage: 3 MG 3 TIMES WEEKLY(18 DF, WEEKLY)
     Dates: start: 20070502, end: 20070821
  10. DOSTINEX [Suspect]
     Active Substance: CABERGOLINE
     Dosage: 12 DF, WEEKLY
     Dates: start: 20070205, end: 20070501
  11. DOSTINEX [Suspect]
     Active Substance: CABERGOLINE
     Dosage: 1.5 MG, 2X/WEEK FOR ONE WEEK
     Dates: start: 200612, end: 200612
  12. DOSTINEX [Suspect]
     Active Substance: CABERGOLINE
     Dosage: 4 DF, WEEKLY
     Dates: start: 20121205

REACTIONS (7)
  - Gambling disorder [Recovered/Resolved]
  - Overdose [Unknown]
  - Nausea [Not Recovered/Not Resolved]
  - Anxiety [Unknown]
  - Malignant melanoma [Unknown]
  - Syncope [Not Recovered/Not Resolved]
  - Blood pressure decreased [Not Recovered/Not Resolved]

NARRATIVE: CASE EVENT DATE: 2007
